FAERS Safety Report 24154342 (Version 1)
Quarter: 2024Q3

REPORT INFORMATION
  Report Type: Spontaneous
  Country: GB (occurrence: GB)
  Receive Date: 20240730
  Receipt Date: 20240730
  Transmission Date: 20241017
  Serious: Yes (Other)
  Sender: ABBVIE
  Company Number: GB-MHRA-MIDB-54eca621-bae8-4208-823c-5b7cbf5fd19d

PATIENT
  Age: 60 Year

DRUGS (5)
  1. RISANKIZUMAB [Suspect]
     Active Substance: RISANKIZUMAB
     Indication: Product used for unknown indication
     Dosage: 600MG STAT
     Route: 042
     Dates: start: 20231215
  2. DULOXETINE [Concomitant]
     Active Substance: DULOXETINE
     Indication: Product used for unknown indication
     Dosage: DULOXETINE 20MG GASTRO-RESISTANT CAPSULES, ONE TO BE TAKEN EACH DAY FOR 2 WEEKS
     Route: 048
  3. ONDANSETRON [Concomitant]
     Active Substance: ONDANSETRON
     Indication: Product used for unknown indication
     Dosage: ONDANSETRON 4MG TABLETS, ONE BD
     Route: 048
  4. INFLIXIMAB [Suspect]
     Active Substance: INFLIXIMAB
     Indication: Product used for unknown indication
     Route: 065
  5. AMITRIPTYLINE [Concomitant]
     Active Substance: AMITRIPTYLINE
     Indication: Product used for unknown indication
     Dosage: 1BD AMITRIPTYLINE 25MG TABLETS, ONE TO BE TAKEN AT NIGHT (TOTAL DAILY DOSE 35MG AT NIGHT)
     Route: 048

REACTIONS (4)
  - Lupus-like syndrome [Unknown]
  - Back pain [Recovering/Resolving]
  - Headache [Recovered/Resolved]
  - Mobility decreased [Recovered/Resolved]

NARRATIVE: CASE EVENT DATE: 20231216
